FAERS Safety Report 9121316 (Version 2)
Quarter: 2013Q1

REPORT INFORMATION
  Report Type: Spontaneous
  Country: JP (occurrence: JP)
  Receive Date: 20130225
  Receipt Date: 20130312
  Transmission Date: 20140127
  Serious: Yes (Other)
  Sender: FDA-Public Use
  Company Number: JP-PFIZER INC-2013067893

PATIENT
  Age: 10 Decade
  Sex: Female

DRUGS (3)
  1. CELECOX [Suspect]
     Indication: MUSCULOSKELETAL PAIN
     Dosage: 200 MG, DAILY
     Route: 048
     Dates: start: 201301, end: 201302
  2. BAYASPIRIN [Concomitant]
     Dosage: UNK
  3. PLAVIX [Concomitant]
     Dosage: UNK

REACTIONS (1)
  - Hypoacusis [Unknown]
